FAERS Safety Report 9483183 (Version 1)
Quarter: 2013Q3

REPORT INFORMATION
  Report Type: Spontaneous
  Country: US (occurrence: US)
  Receive Date: 20130828
  Receipt Date: 20130828
  Transmission Date: 20140515
  Serious: Yes (Other)
  Sender: FDA-Public Use
  Company Number: US-AMGEN-US176754

PATIENT
  Age: 55 Year
  Sex: Male

DRUGS (9)
  1. ENBREL [Suspect]
     Indication: ANKYLOSING SPONDYLITIS
     Dosage: 50 MG, QWK
     Route: 058
     Dates: start: 20040314
  2. PROCRIT [Suspect]
     Indication: PRODUCT USED FOR UNKNOWN INDICATION
     Dosage: UNK UNK, UNK
     Route: 065
  3. RAMIPRIL [Concomitant]
     Dosage: UNK UNK, UNK
  4. BUDESONIDE [Concomitant]
     Dosage: UNK UNK, UNK
  5. FENTANYL [Concomitant]
     Dosage: UNK UNK, UNK
  6. OMEPRAZOLE [Concomitant]
     Dosage: UNK UNK, UNK
  7. MORPHINE SULFATE [Concomitant]
     Dosage: UNK UNK, UNK
  8. ATORVASTATIN CALCIUM [Concomitant]
     Dosage: UNK UNK, UNK
  9. SODIUM BICARBONATE [Concomitant]
     Dosage: UNK UNK, UNK

REACTIONS (1)
  - Squamous cell carcinoma of the tongue [Recovered/Resolved]
